FAERS Safety Report 18462279 (Version 1)
Quarter: 2020Q4

REPORT INFORMATION
  Report Type: Spontaneous
  Country: US (occurrence: US)
  Receive Date: 20201103
  Receipt Date: 20201103
  Transmission Date: 20210114
  Serious: Yes (Death)
  Sender: FDA-Public Use
  Company Number: None

PATIENT
  Age: 51 Year
  Sex: Female

DRUGS (2)
  1. ASPIRIN. [Suspect]
     Active Substance: ASPIRIN
  2. CILOSTAZOL. [Suspect]
     Active Substance: CILOSTAZOL

REACTIONS (5)
  - Upper gastrointestinal haemorrhage [None]
  - Hypotension [None]
  - Tachycardia [None]
  - Diverticulum intestinal haemorrhagic [None]
  - Haemorrhoids [None]

NARRATIVE: CASE EVENT DATE: 20200216
